FAERS Safety Report 7588940-6 (Version None)
Quarter: 2011Q3

REPORT INFORMATION
  Report Type: 
  Country: None (occurrence: None)
  Receive Date: 20110705
  Receipt Date: 20110621
  Transmission Date: 20111222
  Serious: Yes (Other)
  Sender: FDA-Public Use
  Company Number: US-BAYER-2010-001017

PATIENT
  Age: 40 Year
  Sex: Female
  Weight: 86.168 kg

DRUGS (1)
  1. YASMIN [Suspect]
     Indication: CONTRACEPTION
     Route: 048

REACTIONS (3)
  - CHOLECYSTITIS [None]
  - GALLBLADDER DISORDER [None]
  - CHOLELITHIASIS [None]
